FAERS Safety Report 8491433-5 (Version None)
Quarter: 2012Q3

REPORT INFORMATION
  Report Type: 
  Country: None (occurrence: None)
  Receive Date: 20120706
  Receipt Date: 20120622
  Transmission Date: 20120928
  Serious: Yes (Hospitalization)
  Sender: FDA-Public Use
  Company Number: US-SHIRE-ALL1-2012-02311

PATIENT
  Sex: Female
  Weight: 47.619 kg

DRUGS (7)
  1. LIALDA [Suspect]
     Indication: COLITIS
     Dosage: UNK UNK, 1X/DAY:QD
     Route: 048
     Dates: start: 20110101, end: 20120101
  2. LEVOXYL [Concomitant]
     Indication: HYPOTHYROIDISM
     Dosage: 125 MG, 1X/DAY:QD
     Route: 048
     Dates: start: 20020101
  3. SINGULAIR [Concomitant]
     Indication: ASTHMA
     Dosage: 10 MG, 1X/DAY:QD
     Route: 048
     Dates: start: 20020101
  4. ALBUTEROL [Concomitant]
     Indication: PRODUCT USED FOR UNKNOWN INDICATION
     Dosage: 90 ?G, UNKNOWN
     Route: 055
  5. METAMUCIL                          /00091301/ [Concomitant]
     Indication: PRODUCT USED FOR UNKNOWN INDICATION
     Dosage: UNK, UNKNOWN
     Route: 065
  6. ALIGN [Concomitant]
     Indication: PRODUCT USED FOR UNKNOWN INDICATION
     Dosage: 4 MG, UNKNOWN
     Route: 065
  7. MULTI-VITAMINS [Concomitant]
     Indication: PRODUCT USED FOR UNKNOWN INDICATION
     Dosage: UNK UNK, 1X/DAY:QD
     Route: 048

REACTIONS (3)
  - WEIGHT DECREASED [None]
  - CLOSTRIDIUM DIFFICILE COLITIS [None]
  - HOSPITALISATION [None]
